FAERS Safety Report 12147734 (Version 2)
Quarter: 2016Q1

REPORT INFORMATION
  Report Type: Spontaneous
  Country: ZA (occurrence: ZA)
  Receive Date: 20160304
  Receipt Date: 20160322
  Transmission Date: 20160526
  Serious: Yes (Life-Threatening, Other)
  Sender: FDA-Public Use
  Company Number: ZA-ELI_LILLY_AND_COMPANY-ZA201602009926

PATIENT
  Age: 62 Year
  Sex: Male

DRUGS (3)
  1. BETANOID                           /00008501/ [Concomitant]
     Active Substance: BETAMETHASONE
     Indication: PREMEDICATION
     Dosage: UNK, UNKNOWN
     Route: 065
  2. ERBITUX [Suspect]
     Active Substance: CETUXIMAB
     Indication: PRODUCT USED FOR UNKNOWN INDICATION
     Dosage: UNK UNK, UNKNOWN
     Route: 065
  3. PHENERGAN [Concomitant]
     Active Substance: PROMETHAZINE HYDROCHLORIDE
     Indication: PREMEDICATION

REACTIONS (2)
  - Infusion related reaction [Unknown]
  - Anaphylactic reaction [Unknown]
